FAERS Safety Report 8229886-X (Version None)
Quarter: 2012Q1

REPORT INFORMATION
  Report Type: 
  Country: None (occurrence: None)
  Receive Date: 20120323
  Receipt Date: 20120314
  Transmission Date: 20120608
  Serious: Yes (Hospitalization)
  Sender: FDA-Public Use
  Company Number: US-BIOGENIDEC-2012BI009545

PATIENT
  Age: 46 Year
  Sex: Female

DRUGS (1)
  1. TYSABRI [Suspect]
     Indication: MULTIPLE SCLEROSIS
     Route: 042
     Dates: start: 20100629

REACTIONS (8)
  - ASTHENIA [None]
  - UROSEPSIS [None]
  - DEEP VEIN THROMBOSIS [None]
  - INFLUENZA LIKE ILLNESS [None]
  - SWELLING [None]
  - FATIGUE [None]
  - MUSCLE SPASTICITY [None]
  - PYREXIA [None]
